FAERS Safety Report 5841980-7 (Version None)
Quarter: 2008Q3

REPORT INFORMATION
  Report Type: 
  Country: None (occurrence: None)
  Receive Date: 20080812
  Receipt Date: 20080804
  Transmission Date: 20090109
  Serious: Yes (Disabling, Other)
  Sender: FDA-Public Use
  Company Number: US-MERCK-0704USA05897

PATIENT
  Age: 53 Year
  Sex: Female

DRUGS (3)
  1. FOSAMAX [Suspect]
     Indication: OSTEOPOROSIS
     Route: 048
     Dates: start: 20020301, end: 20060701
  2. LANTUS [Concomitant]
     Indication: DIABETES MELLITUS
     Route: 065
     Dates: start: 19990101, end: 20071001
  3. METFORMIN [Concomitant]
     Indication: DIABETES MELLITUS
     Route: 065
     Dates: start: 19990101, end: 20071001

REACTIONS (19)
  - ADVERSE EVENT [None]
  - ANXIETY [None]
  - BLOOD CHOLESTEROL INCREASED [None]
  - CARDIAC DISORDER [None]
  - CHEST PAIN [None]
  - DEAFNESS [None]
  - DEPRESSION [None]
  - DIABETES MELLITUS INADEQUATE CONTROL [None]
  - EMOTIONAL DISTRESS [None]
  - HEPATIC STEATOSIS [None]
  - HYPERTENSION [None]
  - HYPOAESTHESIA [None]
  - INSULIN RESISTANCE [None]
  - JAW DISORDER [None]
  - NEPHROLITHIASIS [None]
  - OBESITY [None]
  - OEDEMA PERIPHERAL [None]
  - PARAESTHESIA [None]
  - TOOTH LOSS [None]
